FAERS Safety Report 6633124-9 (Version None)
Quarter: 2010Q1

REPORT INFORMATION
  Report Type: 
  Country: None (occurrence: None)
  Receive Date: 20100312
  Receipt Date: 20100305
  Transmission Date: 20100710
  Serious: Yes (Hospitalization)
  Sender: FDA-Public Use
  Company Number: US-ABBOTT-10P-163-0629463-00

PATIENT
  Sex: Female

DRUGS (12)
  1. HUMIRA [Suspect]
     Indication: PSORIASIS
     Route: 058
     Dates: start: 20080523, end: 20091219
  2. ALL OTHER NON-THERAPEUTIC PRODUCTS [Concomitant]
     Indication: PSORIASIS
     Dates: start: 20081001
  3. TACLONEX [Concomitant]
     Indication: PSORIASIS
     Dates: start: 20080606
  4. COAL TAR [Concomitant]
     Indication: PSORIASIS
     Dates: start: 20070101
  5. FOLIC ACID [Concomitant]
     Indication: PSORIASIS
     Dates: start: 20080510
  6. CLOBEX [Concomitant]
     Indication: PSORIASIS
     Dates: start: 20080510
  7. LAC-HYDRIN [Concomitant]
     Indication: PSORIASIS
     Dates: start: 20090416
  8. DOVONEX [Concomitant]
     Indication: PSORIASIS
     Dates: start: 20080101
  9. UREA [Concomitant]
     Indication: PSORIASIS
     Dates: start: 20080904
  10. SERTRALINE HCL [Concomitant]
     Indication: DEPRESSION
     Dates: start: 19870101
  11. DESOGESTREL AND ETHINYL ESTRADIOL [Concomitant]
     Indication: CONTRACEPTION
     Dates: start: 19990101, end: 20091223
  12. CLINDAMYCIN [Concomitant]
     Indication: ACNE
     Dates: start: 20100121

REACTIONS (1)
  - COMPLICATION OF PREGNANCY [None]
